FAERS Safety Report 15358911 (Version 2)
Quarter: 2018Q4

REPORT INFORMATION
  Report Type: Spontaneous
  Country: US (occurrence: US)
  Receive Date: 20180906
  Receipt Date: 20181205
  Transmission Date: 20190204
  Serious: No
  Sender: FDA-Public Use
  Company Number: US-PTC THERAPEUTICS, INC.-US-2018PTC000684

PATIENT

DRUGS (3)
  1. EMFLAZA [Suspect]
     Active Substance: DEFLAZACORT
     Dosage: 30 MG, QD
     Route: 048
     Dates: start: 20171129
  2. EMFLAZA [Suspect]
     Active Substance: DEFLAZACORT
     Indication: DUCHENNE MUSCULAR DYSTROPHY
     Dosage: 30 MG, QD
     Route: 048
  3. EMFLAZA [Suspect]
     Active Substance: DEFLAZACORT
     Dosage: 36 MG, QD
     Route: 048

REACTIONS (5)
  - Weight increased [Unknown]
  - Skin striae [Unknown]
  - Skin disorder [Recovered/Resolved]
  - Irritability [Unknown]
  - Cushingoid [Unknown]
